FAERS Safety Report 18955401 (Version 3)
Quarter: 2021Q1

REPORT INFORMATION
  Report Type: Spontaneous
  Country: CH (occurrence: CH)
  Receive Date: 20210301
  Receipt Date: 20210303
  Transmission Date: 20210420
  Serious: Yes (Hospitalization, Other)
  Sender: FDA-Public Use
  Company Number: CH-PFIZER INC-2021211896

PATIENT
  Age: 86 Year
  Sex: Male
  Weight: 69 kg

DRUGS (15)
  1. SPIRIVA [Concomitant]
     Active Substance: TIOTROPIUM BROMIDE MONOHYDRATE
     Dosage: 18 MICROGRAM, QD
     Route: 055
  2. VANNAIR [Concomitant]
     Active Substance: BUDESONIDE\FORMOTEROL FUMARATE DIHYDRATE
     Dosage: UNK UNK, BID
     Route: 055
  3. KEYTRUDA [Suspect]
     Active Substance: PEMBROLIZUMAB
     Indication: METASTATIC MALIGNANT MELANOMA
  4. TOREM [TORASEMIDE] [Suspect]
     Active Substance: TORSEMIDE
     Dosage: 5 MILLIGRAM, QD
     Route: 048
     Dates: end: 20210127
  5. ACIDUM FOLICUM [Concomitant]
     Active Substance: FOLIC ACID
     Dosage: 5 MILLIGRAM, 2/WEEK
     Route: 048
     Dates: end: 202102
  6. ELIQUIS [Suspect]
     Active Substance: APIXABAN
     Indication: ATRIAL FIBRILLATION
     Dosage: 2.5 MILLIGRAM, QD
     Route: 048
     Dates: end: 20210127
  7. IRFEN [Suspect]
     Active Substance: IBUPROFEN
     Dosage: 1 DOSAGE FORM AS NECESSARY
     Route: 048
     Dates: end: 20210127
  8. NEBIVOLOL. [Concomitant]
     Active Substance: NEBIVOLOL
     Dosage: 5 MILLIGRAM, QD
     Route: 048
  9. ACETYLCYSTEINE. [Concomitant]
     Active Substance: ACETYLCYSTEINE
     Dosage: 200 MILLIGRAM, QD
     Route: 048
     Dates: end: 202102
  10. MAGNESIOCARD [Concomitant]
     Active Substance: MAGNESIUM ASPARTATE HYDROCHLORIDE
     Dosage: 5 MG, 1X/DAY
     Route: 048
     Dates: end: 202102
  11. PANTOPRAZOLE [Suspect]
     Active Substance: PANTOPRAZOLE
     Dosage: 1 DF
     Route: 048
     Dates: end: 20210127
  12. CALCIMAGON [CALCIUM] [Concomitant]
     Dosage: 1 DF, 1X/DAY
     Route: 048
  13. KEYTRUDA [Suspect]
     Active Substance: PEMBROLIZUMAB
     Indication: PALLIATIVE CARE
     Dosage: 1 DOSAGE FORM CYCLICAL
     Route: 042
     Dates: start: 20200730, end: 20210104
  14. HARPAGOMED [Suspect]
     Active Substance: HARPAGOPHYTUM PROCUMBENS ROOT\HERBALS
     Dosage: 1 DF
     Route: 048
     Dates: start: 20210127
  15. ZYLORIC [Suspect]
     Active Substance: ALLOPURINOL
     Dosage: 300 MILLIGRAM, QD
     Route: 048
     Dates: end: 20210127

REACTIONS (3)
  - Drug-induced liver injury [Recovering/Resolving]
  - Autoimmune hepatitis [Recovering/Resolving]
  - Jaundice [Recovering/Resolving]

NARRATIVE: CASE EVENT DATE: 20210124
